FAERS Safety Report 24301273 (Version 1)
Quarter: 2024Q3

REPORT INFORMATION
  Report Type: Spontaneous
  Country: US (occurrence: US)
  Receive Date: 20240910
  Receipt Date: 20240910
  Transmission Date: 20241017
  Serious: Yes (Hospitalization)
  Sender: GRIFOLS
  Company Number: US-IGSA-BIG0030546

PATIENT
  Age: 70 Year
  Sex: Female
  Weight: 91.156 kg

DRUGS (7)
  1. GAMUNEX-C [Suspect]
     Active Substance: HUMAN IMMUNOGLOBULIN G
     Indication: Central nervous system lupus
     Dosage: 103.5 GRAM, Q.4WK.
     Route: 042
     Dates: start: 20240802
  2. GAMUNEX-C [Suspect]
     Active Substance: HUMAN IMMUNOGLOBULIN G
     Indication: Off label use
     Dosage: 103.5 GRAM, Q.4WK.
     Route: 042
     Dates: start: 20240802
  3. GAMUNEX-C [Suspect]
     Active Substance: HUMAN IMMUNOGLOBULIN G
     Dosage: 103.5 GRAM, Q.4WK.
     Route: 042
     Dates: start: 20240802
  4. GAMUNEX-C [Suspect]
     Active Substance: HUMAN IMMUNOGLOBULIN G
     Dosage: 103.5 GRAM, Q.4WK.
     Route: 042
     Dates: start: 20240801
  5. GAMUNEX-C [Suspect]
     Active Substance: HUMAN IMMUNOGLOBULIN G
     Dosage: 103.5 GRAM, Q.4WK.
     Route: 042
     Dates: start: 20240801
  6. GAMUNEX-C [Suspect]
     Active Substance: HUMAN IMMUNOGLOBULIN G
     Dosage: 103.5 GRAM, Q.4WK.
     Route: 042
     Dates: start: 20240801
  7. GAMUNEX-C [Suspect]
     Active Substance: HUMAN IMMUNOGLOBULIN G
     Dosage: 103.5 GRAM, Q.4WK.
     Route: 042
     Dates: start: 202405

REACTIONS (5)
  - Headache [Unknown]
  - Dyspnoea [Unknown]
  - Arthralgia [Unknown]
  - Thrombosis [Unknown]
  - Inflammation [Unknown]

NARRATIVE: CASE EVENT DATE: 20240803
